FAERS Safety Report 9781070 (Version 1)
Quarter: 2013Q4

REPORT INFORMATION
  Report Type: Spontaneous
  Country: US (occurrence: None)
  Receive Date: 20131220
  Receipt Date: 20131220
  Transmission Date: 20140711
  Serious: Yes (Other)
  Sender: FDA-Public Use
  Company Number: 2013EXPUS00151

PATIENT
  Age: 15 Year
  Sex: 0

DRUGS (1)
  1. EXPAREL [Suspect]
     Indication: POSTOPERATIVE ANALGESIA
     Dates: start: 20131105, end: 20131105

REACTIONS (2)
  - Pulse absent [None]
  - Off label use [None]
